FAERS Safety Report 24434430 (Version 1)
Quarter: 2024Q4

REPORT INFORMATION
  Report Type: Spontaneous
  Country: US (occurrence: US)
  Receive Date: 20241014
  Receipt Date: 20241014
  Transmission Date: 20250114
  Serious: No
  Sender: BAYER HEALTHCARE PHARMACEUTICALS INC.
  Company Number: US-BAYER-2024A144275

PATIENT
  Age: 69 Year
  Sex: Female

DRUGS (2)
  1. ADEMPAS [Suspect]
     Active Substance: RIOCIGUAT
     Indication: Pulmonary hypertension
     Dosage: 1 MG, QD
     Route: 048
     Dates: start: 20240617
  2. ADEMPAS [Suspect]
     Active Substance: RIOCIGUAT
     Indication: Pulmonary hypertension
     Dosage: 1.5 MG, BID
     Route: 048
     Dates: start: 20240617

REACTIONS (3)
  - Dyspepsia [None]
  - Incorrect dose administered [None]
  - Gastrooesophageal reflux disease [None]
